FAERS Safety Report 5713243-1 (Version None)
Quarter: 2008Q2

REPORT INFORMATION
  Report Type: 
  Country: None (occurrence: None)
  Receive Date: 20080422
  Receipt Date: 20080414
  Transmission Date: 20081010
  Serious: Yes (Hospitalization, Other)
  Sender: FDA-Public Use
  Company Number: US-PFIZER INC-2006123976

PATIENT
  Sex: Male
  Weight: 86.2 kg

DRUGS (4)
  1. CELEBREX [Suspect]
     Indication: GOUT
     Dates: start: 20020401, end: 20030401
  2. CELEBREX [Suspect]
     Indication: ARTHRITIS
  3. BEXTRA [Suspect]
     Indication: GOUT
  4. BEXTRA [Suspect]
     Indication: ARTHRITIS

REACTIONS (1)
  - CEREBROVASCULAR ACCIDENT [None]
